FAERS Safety Report 13772451 (Version 4)
Quarter: 2019Q1

REPORT INFORMATION
  Report Type: Spontaneous
  Country: PT (occurrence: PT)
  Receive Date: 20170720
  Receipt Date: 20190322
  Transmission Date: 20190417
  Serious: Yes (Hospitalization, Other)
  Sender: FDA-Public Use
  Company Number: PT-AUROBINDO-AUR-APL-2012-05134

PATIENT

DRUGS (13)
  1. CARVEDILOL FILM-COATED TABLETS [Suspect]
     Active Substance: CARVEDILOL
     Indication: ISCHAEMIC CARDIOMYOPATHY
     Dosage: 3.125 MG, UNK
     Route: 065
  2. CARVEDILOL FILM-COATED TABLETS [Suspect]
     Active Substance: CARVEDILOL
     Indication: CORONARY ARTERY DISEASE
  3. PERINDOPRIL TABLET [Suspect]
     Active Substance: PERINDOPRIL
     Indication: ISCHAEMIC CARDIOMYOPATHY
     Dosage: 2 MG, UNK
     Route: 065
  4. TRIFLUSAL [Suspect]
     Active Substance: TRIFLUSAL
     Indication: ISCHAEMIC CARDIOMYOPATHY
  5. CLOPIDOGREL [Suspect]
     Active Substance: CLOPIDOGREL BISULFATE
     Indication: CORONARY ARTERY DISEASE
  6. TRIFLUSAL [Suspect]
     Active Substance: TRIFLUSAL
     Indication: ANTIPLATELET THERAPY
     Dosage: UNK
     Route: 065
  7. TRIFLUSAL [Suspect]
     Active Substance: TRIFLUSAL
     Indication: CORONARY ARTERY DISEASE
  8. ROSUVASTATIN. [Suspect]
     Active Substance: ROSUVASTATIN
     Indication: CORONARY ARTERY DISEASE
  9. CLOPIDOGREL [Suspect]
     Active Substance: CLOPIDOGREL BISULFATE
     Indication: ANTIPLATELET THERAPY
     Dosage: UNK UNK,UNK,
     Route: 065
  10. CLOPIDOGREL [Suspect]
     Active Substance: CLOPIDOGREL BISULFATE
     Indication: ISCHAEMIC CARDIOMYOPATHY
  11. ROSUVASTATIN. [Suspect]
     Active Substance: ROSUVASTATIN
     Indication: ISCHAEMIC CARDIOMYOPATHY
     Dosage: UNK UNK,UNK,
     Route: 065
  12. BUDESONIDE;FORMOTEROL [Concomitant]
     Indication: PRODUCT USED FOR UNKNOWN INDICATION
     Dosage: UNK UNK,UNK,
  13. PERINDOPRIL TABLET [Suspect]
     Active Substance: PERINDOPRIL
     Indication: CORONARY ARTERY DISEASE

REACTIONS (6)
  - Abdominal distension [Recovered/Resolved]
  - Flatulence [Recovered/Resolved]
  - Diarrhoea [Recovered/Resolved]
  - Lactose intolerance [Recovered/Resolved]
  - Abdominal pain [Recovered/Resolved]
  - Nausea [Recovered/Resolved]
